FAERS Safety Report 20619946 (Version 5)
Quarter: 2022Q2

REPORT INFORMATION
  Report Type: Report from Study
  Country: CA (occurrence: CA)
  Receive Date: 20220322
  Receipt Date: 20220607
  Transmission Date: 20220721
  Serious: Yes (Hospitalization, Other)
  Sender: FDA-Public Use
  Company Number: CA-TAKEDA-2022TUS018128

PATIENT
  Age: 68 Year
  Sex: Male

DRUGS (10)
  1. VEDOLIZUMAB [Suspect]
     Active Substance: VEDOLIZUMAB
     Indication: Colitis ulcerative
     Dosage: 300 MILLIGRAM
     Route: 042
     Dates: start: 20211230
  2. VEDOLIZUMAB [Suspect]
     Active Substance: VEDOLIZUMAB
     Dosage: 300 MILLIGRAM
     Route: 042
  3. VEDOLIZUMAB [Suspect]
     Active Substance: VEDOLIZUMAB
     Dosage: 300 MILLIGRAM
     Route: 042
  4. MESALAMINE [Concomitant]
     Active Substance: MESALAMINE
     Dosage: UNK
     Dates: start: 2011
  5. PERINDOPRIL [Concomitant]
     Active Substance: PERINDOPRIL
     Dosage: 8 MILLIGRAM, QD
  6. AMLODIPINE [Concomitant]
     Active Substance: AMLODIPINE BESYLATE
     Dosage: 5 MILLIGRAM, QD
  7. SYNTHROID [Concomitant]
     Active Substance: LEVOTHYROXINE SODIUM
     Dosage: 25 MILLIGRAM, QD
  8. ALLOPURINOL [Concomitant]
     Active Substance: ALLOPURINOL
     Dosage: 300 MILLIGRAM, QD
  9. ROSUVASTATIN [Concomitant]
     Active Substance: ROSUVASTATIN
     Dosage: 5 MILLIGRAM, QD
  10. CALCIUM [Concomitant]
     Active Substance: CALCIUM
     Dosage: UNK

REACTIONS (1)
  - Heart valve operation [Unknown]
